FAERS Safety Report 24711539 (Version 1)
Quarter: 2024Q4

REPORT INFORMATION
  Report Type: Spontaneous
  Country: US (occurrence: None)
  Receive Date: 20241207
  Receipt Date: 20241207
  Transmission Date: 20250115
  Serious: Yes (Hospitalization)
  Sender: Public
  Company Number: None

PATIENT
  Age: 0 Year
  Sex: Male
  Weight: 65.8 kg

DRUGS (1)
  1. SACITUZUMAB GOVITECAN [Suspect]
     Active Substance: SACITUZUMAB GOVITECAN
     Dates: end: 20241113

REACTIONS (2)
  - Oropharyngeal pain [None]
  - Beta haemolytic streptococcal infection [None]

NARRATIVE: CASE EVENT DATE: 20241124
